FAERS Safety Report 4774118-8 (Version None)
Quarter: 2005Q3

REPORT INFORMATION
  Report Type: 
  Country: None (occurrence: None)
  Receive Date: 20050914
  Receipt Date: 20050401
  Transmission Date: 20060218
  Serious: Yes (Other)
  Sender: FDA-Public Use
  Company Number: 163-20785-05040217

PATIENT
  Sex: Male

DRUGS (4)
  1. THALOMID [Suspect]
     Indication: PROSTATIC INTRAEPITHELIAL NEOPLASIA
     Dosage: 200 MG PLACEBO DAILY ORAL; 200 MG OR PLACEBO DAILY ORAL
     Route: 048
     Dates: start: 20010522
  2. THALOMID [Suspect]
     Indication: PROSTATIC INTRAEPITHELIAL NEOPLASIA
     Dosage: 200 MG PLACEBO DAILY ORAL; 200 MG OR PLACEBO DAILY ORAL
     Route: 048
     Dates: start: 20020830
  3. LEUPROLIDE (L) OR GOSRELIN (G) [Suspect]
     Indication: PROSTATIC INTRAEPITHELIAL NEOPLASIA
     Dosage: SEE IMAGE
     Route: 058
     Dates: start: 20020522
  4. LEUPROLIDE (L) OR GOSRELIN (G) [Suspect]
     Indication: PROSTATIC INTRAEPITHELIAL NEOPLASIA
     Dosage: SEE IMAGE
     Route: 058
     Dates: start: 20020830

REACTIONS (1)
  - HYPOPHOSPHATAEMIA [None]
